FAERS Safety Report 23315505 (Version 1)
Quarter: 2023Q4

REPORT INFORMATION
  Report Type: Spontaneous
  Country: US (occurrence: US)
  Receive Date: 20231219
  Receipt Date: 20231219
  Transmission Date: 20240110
  Serious: No
  Sender: FDA-Public Use
  Company Number: US-ORG100016242-2023000197

PATIENT
  Age: 15 Year
  Sex: Male

DRUGS (1)
  1. EXPAREL [Suspect]
     Active Substance: BUPIVACAINE
     Indication: Spinal fusion surgery
     Dosage: 212.8 MG IN 16 ML
     Route: 065
     Dates: start: 20230620, end: 20230620

REACTIONS (1)
  - Procedural pain [Not Recovered/Not Resolved]
